FAERS Safety Report 15611877 (Version 1)
Quarter: 2018Q4

REPORT INFORMATION
  Report Type: Spontaneous
  Country: US (occurrence: US)
  Receive Date: 20181113
  Receipt Date: 20181113
  Transmission Date: 20190205
  Serious: No
  Sender: FDA-Public Use
  Company Number: US-SA-2018SA309169

PATIENT
  Sex: Female

DRUGS (2)
  1. FLEXALL PAIN RELIEVING [Suspect]
     Active Substance: MENTHOL
     Indication: MYALGIA
  2. FLEXALL PAIN RELIEVING [Suspect]
     Active Substance: MENTHOL
     Indication: ARTHRALGIA
     Route: 061

REACTIONS (1)
  - Therapeutic product effective for unapproved indication [Unknown]
